FAERS Safety Report 20480795 (Version 1)
Quarter: 2022Q1

REPORT INFORMATION
  Report Type: Spontaneous
  Country: US (occurrence: US)
  Receive Date: 20220216
  Receipt Date: 20220216
  Transmission Date: 20220423
  Serious: Yes (Other)
  Sender: FDA-Public Use
  Company Number: US-OTSUKA-2021_033837

PATIENT
  Sex: Male

DRUGS (13)
  1. BUSULFAN [Suspect]
     Active Substance: BUSULFAN
     Indication: Transferrin decreased
     Dosage: (0.8-1.1 MG/KG/DOSE EVERY 6 HOURS ON DAYS -7, -6, -5, AND -4)
     Route: 042
  2. BUSULFAN [Suspect]
     Active Substance: BUSULFAN
     Indication: Bone marrow conditioning regimen
  3. BUSULFAN [Suspect]
     Active Substance: BUSULFAN
     Indication: Stem cell transplant
  4. FLUDARABINE [Suspect]
     Active Substance: FLUDARABINE PHOSPHATE
     Indication: Transferrin decreased
     Dosage: (40 MG/M2 DAILY ON DAYS -5, -4, -3, AND -2)
     Route: 065
  5. FLUDARABINE [Suspect]
     Active Substance: FLUDARABINE PHOSPHATE
     Indication: Bone marrow conditioning regimen
  6. FLUDARABINE [Suspect]
     Active Substance: FLUDARABINE PHOSPHATE
     Indication: Stem cell transplant
  7. THYMOCYTE IMMUNE GLOBULIN NOS [Suspect]
     Active Substance: THYMOCYTE IMMUNE GLOBULIN NOS
     Indication: Transferrin decreased
     Dosage: 30 MG/KG DAILY ON DAYS -3, -2, AND -1
     Route: 065
  8. THYMOCYTE IMMUNE GLOBULIN NOS [Suspect]
     Active Substance: THYMOCYTE IMMUNE GLOBULIN NOS
     Indication: Bone marrow conditioning regimen
  9. THYMOCYTE IMMUNE GLOBULIN NOS [Suspect]
     Active Substance: THYMOCYTE IMMUNE GLOBULIN NOS
     Indication: Stem cell transplant
  10. CYCLOSPORINE [Suspect]
     Active Substance: CYCLOSPORINE
     Indication: Prophylaxis against graft versus host disease
     Dosage: UNK
     Route: 065
  11. METHOTREXATE [Suspect]
     Active Substance: METHOTREXATE
     Indication: Prophylaxis against graft versus host disease
     Dosage: 15 MG/MG2 IV ON DAY PLUS 1 AND 10 MG/M2, ON DAYS PLUS 3, PLUS 6, AND PLUS 11
     Route: 065
  12. METHYLPREDNISOLONE [Suspect]
     Active Substance: METHYLPREDNISOLONE
     Indication: Prophylaxis against graft versus host disease
     Dosage: 1 MG/KG/D FROM DAY PLUS 7 THROUGH DAY PLUS 20
     Route: 065
  13. METHYLPREDNISOLONE [Suspect]
     Active Substance: METHYLPREDNISOLONE
     Dosage: TAPERED DOSE, INITIATED ON DAY + 21, WEANED OFF BY 10 %
     Route: 065

REACTIONS (7)
  - Clostridium difficile colitis [Recovered/Resolved]
  - Cytomegalovirus viraemia [Recovered/Resolved]
  - Epstein-Barr viraemia [Recovered/Resolved]
  - BK virus infection [Recovered/Resolved]
  - Aspergillus infection [Recovered/Resolved]
  - Influenza [Recovered/Resolved]
  - Product use in unapproved indication [Unknown]
